FAERS Safety Report 4798240-5 (Version None)
Quarter: 2005Q4

REPORT INFORMATION
  Report Type: 
  Country: None (occurrence: None)
  Receive Date: 20051011
  Receipt Date: 20051011
  Transmission Date: 20060501
  Serious: Yes (Other)
  Sender: FDA-Public Use
  Company Number: None

PATIENT
  Age: 68 Year
  Sex: Female

DRUGS (4)
  1. DOCETAXEL [Suspect]
     Indication: BREAST CANCER
     Dosage: 100 MG/M2
     Dates: start: 20031126
  2. ADRIAMYCIN PFS [Suspect]
  3. HERCEPTIN [Suspect]
  4. TAXOTERE [Concomitant]

REACTIONS (9)
  - ALOPECIA [None]
  - CONJUNCTIVITIS BACTERIAL [None]
  - FEBRILE NEUTROPENIA [None]
  - HAIR GROWTH ABNORMAL [None]
  - LYMPHOEDEMA [None]
  - OEDEMA PERIPHERAL [None]
  - ORAL PAIN [None]
  - PALMAR-PLANTAR ERYTHRODYSAESTHESIA SYNDROME [None]
  - PNEUMONIA [None]
